FAERS Safety Report 11266547 (Version 4)
Quarter: 2015Q4

REPORT INFORMATION
  Report Type: Report from Study
  Country: US (occurrence: US)
  Receive Date: 20150713
  Receipt Date: 20151103
  Transmission Date: 20160304
  Serious: Yes (Hospitalization, Other)
  Sender: FDA-Public Use
  Company Number: PHEH2015US010403

PATIENT
  Age: 26 Year
  Sex: Female
  Weight: 75.74 kg

DRUGS (3)
  1. PHENTERMINE. [Concomitant]
     Active Substance: PHENTERMINE
     Indication: WEIGHT DECREASED
     Dosage: 30 MG, QD
     Route: 048
  2. GILENYA [Suspect]
     Active Substance: FINGOLIMOD HYDROCHLORIDE
     Indication: MULTIPLE SCLEROSIS
     Dosage: 0.5 MG, QD
     Route: 048
     Dates: start: 201503, end: 20150630
  3. SERTRALINE [Concomitant]
     Active Substance: SERTRALINE HYDROCHLORIDE
     Indication: ANXIETY
     Dosage: 50 MG, QD
     Route: 048

REACTIONS (9)
  - Infection [Recovering/Resolving]
  - Vomiting [Unknown]
  - Nausea [Unknown]
  - White blood cell count decreased [Recovered/Resolved]
  - Abdominal pain [Unknown]
  - Infectious colitis [Unknown]
  - Immunosuppression [Recovering/Resolving]
  - Diarrhoea [Unknown]
  - Colitis ulcerative [Recovered/Resolved]

NARRATIVE: CASE EVENT DATE: 201505
